FAERS Safety Report 16725348 (Version 1)
Quarter: 2019Q4

REPORT INFORMATION
  Report Type: Spontaneous
  Country: US (occurrence: US)
  Receive Date: 20190820
  Receipt Date: 20190820
  Transmission Date: 20200122
  Serious: No
  Sender: FDA-Public Use
  Company Number: None

PATIENT
  Age: 73 Year
  Sex: Female
  Weight: 76.3 kg

DRUGS (1)
  1. RITUXAN [Suspect]
     Active Substance: RITUXIMAB
     Indication: MARGINAL ZONE LYMPHOMA
     Dosage: ?          OTHER FREQUENCY:WEEKLY;?
     Route: 041
     Dates: start: 20190819

REACTIONS (6)
  - Body temperature increased [None]
  - Infusion related reaction [None]
  - Feeling cold [None]
  - Tremor [None]
  - Chills [None]
  - Heart rate increased [None]

NARRATIVE: CASE EVENT DATE: 20190819
